FAERS Safety Report 7681415-5 (Version None)
Quarter: 2011Q3

REPORT INFORMATION
  Report Type: 
  Country: None (occurrence: None)
  Receive Date: 20110812
  Receipt Date: 20110808
  Transmission Date: 20111222
  Serious: Yes (Death, Other)
  Sender: FDA-Public Use
  Company Number: IT-CELGENEUS-083-21880-11061374

PATIENT

DRUGS (2)
  1. REVLIMID [Suspect]
     Dosage: 25 MILLIGRAM
     Route: 048
  2. DEXAMETHASONE [Suspect]
     Dosage: 40 MILLIGRAM
     Route: 048

REACTIONS (8)
  - DEEP VEIN THROMBOSIS [None]
  - DISEASE PROGRESSION [None]
  - PNEUMONIA [None]
  - HAEMATOTOXICITY [None]
  - MULTI-ORGAN FAILURE [None]
  - DEATH [None]
  - STEVENS-JOHNSON SYNDROME [None]
  - RENAL FAILURE ACUTE [None]
